FAERS Safety Report 10039696 (Version 1)
Quarter: 2014Q1

REPORT INFORMATION
  Report Type: Spontaneous
  Country: US (occurrence: US)
  Receive Date: 20140326
  Receipt Date: 20140326
  Transmission Date: 20141002
  Serious: Yes (Life-Threatening, Hospitalization)
  Sender: FDA-Public Use
  Company Number: US-MYLANLABS-2014S1006157

PATIENT
  Age: 56 Year
  Sex: Female
  Weight: 56.4 kg

DRUGS (9)
  1. LIDOCAINE [Suspect]
     Indication: LOCAL ANAESTHESIA
     Dosage: 2% LIDOCAINE
     Route: 058
  2. LIDOCAINE [Suspect]
     Indication: LOCAL ANAESTHESIA
     Dosage: 2% LIDOCAINE
     Route: 058
  3. LIDOCAINE [Suspect]
     Indication: LOCAL ANAESTHESIA
     Dosage: 2% LIDOCAINE
     Route: 058
  4. CARVEDILOL [Suspect]
     Route: 065
  5. ISOSORBIDE DINITRATE [Suspect]
     Route: 065
  6. CANDESARTAN CILEXETIL [Concomitant]
     Dosage: 16MG DAILY
     Route: 065
  7. HYDRALAZINE [Concomitant]
     Route: 065
  8. MIDAZOLAM [Concomitant]
     Indication: SEDATIVE THERAPY
     Route: 042
  9. FENTANYL [Concomitant]
     Indication: SEDATIVE THERAPY
     Route: 042

REACTIONS (5)
  - Toxicity to various agents [Recovered/Resolved]
  - Grand mal convulsion [Recovered/Resolved]
  - Pulseless electrical activity [Recovered/Resolved]
  - Metabolic acidosis [Recovered/Resolved]
  - Respiratory acidosis [Recovered/Resolved]
